FAERS Safety Report 5384232-4 (Version None)
Quarter: 2007Q3

REPORT INFORMATION
  Report Type: 
  Country: None (occurrence: None)
  Receive Date: 20070710
  Receipt Date: 20060705
  Transmission Date: 20080115
  Serious: Yes (Hospitalization)
  Sender: FDA-Public Use
  Company Number: 2005-01925

PATIENT
  Age: 61 Year
  Sex: Female

DRUGS (10)
  1. VELCADE [Suspect]
     Indication: MULTIPLE MYELOMA
     Dosage: 2.50 MG
     Dates: start: 20040914, end: 20041102
  2. LACTULOSE [Concomitant]
  3. ACIPHEX [Concomitant]
  4. COUMADIN [Concomitant]
  5. OSCAL (CALCIUM CARBONATE) [Concomitant]
  6. VITAMIN E [Concomitant]
  7. DARVOCET-N (PARACETAMOL, DEXTROPROPOXYPHENE NAPSILATE) [Concomitant]
  8. SENOKOT [Concomitant]
  9. MILK OF MAGNESIA TAB [Concomitant]
  10. ZOMETA [Concomitant]

REACTIONS (1)
  - ANKLE FRACTURE [None]
